FAERS Safety Report 7118852-3 (Version None)
Quarter: 2010Q4

REPORT INFORMATION
  Report Type: 
  Country: None (occurrence: None)
  Receive Date: 20101123
  Receipt Date: 20100929
  Transmission Date: 20110411
  Serious: No
  Sender: FDA-Public Use
  Company Number: US-KINGPHARMUSA00001-K201001228

PATIENT
  Age: 50 Year
  Sex: Male

DRUGS (1)
  1. FLECTOR [Suspect]
     Indication: TENDONITIS
     Dosage: 1 PATCH, BID
     Route: 061
     Dates: start: 20100801, end: 20100901

REACTIONS (1)
  - APPLICATION SITE DERMATITIS [None]
